FAERS Safety Report 7792101-5 (Version None)
Quarter: 2011Q3

REPORT INFORMATION
  Report Type: 
  Country: None (occurrence: None)
  Receive Date: 20110929
  Receipt Date: 20110920
  Transmission Date: 20111222
  Serious: Yes (Hospitalization)
  Sender: FDA-Public Use
  Company Number: US-006352

PATIENT
  Sex: Female

DRUGS (3)
  1. TRANEXAMIC ACID [Suspect]
     Indication: MENORRHAGIA
     Dosage: (3900 MG ORAL)
     Route: 048
     Dates: start: 20110622, end: 20110623
  2. ULTRAM [Concomitant]
  3. LORTAB [Concomitant]

REACTIONS (3)
  - SWELLING [None]
  - URTICARIA [None]
  - HYPOAESTHESIA [None]
